FAERS Safety Report 9722155 (Version 4)
Quarter: 2014Q2

REPORT INFORMATION
  Report Type: Report from Study
  Country: GB (occurrence: GB)
  Receive Date: 20131202
  Receipt Date: 20140514
  Transmission Date: 20141212
  Serious: Yes (Other)
  Sender: FDA-Public Use
  Company Number: GB-ROCHE-791723

PATIENT
  Age: 72 Year
  Sex: Female
  Weight: 68.8 kg

DRUGS (20)
  1. TRASTUZUMAB EMTANSINE [Suspect]
     Indication: HER-2 POSITIVE BREAST CANCER
     Dosage: MOST RECENT DOSE PRIOR TO SAE: 260 MG ON 07/JUN/2011
     Route: 042
     Dates: start: 20110405
  2. BLINDED PERTUZUMAB [Suspect]
     Indication: HER-2 POSITIVE BREAST CANCER
     Dosage: MOST RECENT DOSE PRIOR TO SAE: 7/JUN/2011, LOADING DOSE
     Route: 042
     Dates: start: 20110405
  3. BLINDED PERTUZUMAB [Suspect]
     Dosage: MOST RECENT DOSE PRIOR TO SAE: 7/JUN/2011, MAINTENANCE DOSE
     Route: 042
  4. OMEPRAZOLE [Concomitant]
     Indication: PROPHYLAXIS
  5. SIMVASTATIN [Concomitant]
  6. QUININE [Concomitant]
  7. SENNA [Concomitant]
     Indication: CONSTIPATION
  8. ESTRADIOL [Concomitant]
     Indication: MENOPAUSAL SYMPTOMS
     Route: 065
  9. AMLODIPINE [Concomitant]
     Indication: HYPERTENSION
  10. CO-CODAMOL [Concomitant]
     Indication: PAIN
  11. GABAPENTIN [Concomitant]
     Indication: PAIN
  12. LISINOPRIL [Concomitant]
     Indication: HYPERTENSION
  13. CO-AMOXICLAV [Concomitant]
     Indication: URINARY TRACT INFECTION
     Route: 065
     Dates: start: 20120806, end: 20120813
  14. AMITRIPTYLINE [Concomitant]
     Indication: PAIN
     Route: 065
     Dates: start: 20120804, end: 20120805
  15. BENZYDAMINE [Concomitant]
     Route: 065
     Dates: start: 20120303, end: 20120310
  16. HYDROCORTISONE [Concomitant]
     Indication: RASH
     Route: 065
     Dates: start: 20110630, end: 20110715
  17. ORAMORPH [Concomitant]
     Indication: PAIN
     Route: 065
     Dates: start: 201208
  18. BLOOD TRANSFUSION [Concomitant]
     Indication: ANAEMIA
     Route: 065
     Dates: start: 20120315, end: 20120315
  19. METOCLOPRAMIDE [Concomitant]
     Indication: NAUSEA
     Route: 065
     Dates: start: 20110412
  20. HYPROMELLOSE [Concomitant]
     Indication: DRY EYE
     Route: 065
     Dates: start: 20111104

REACTIONS (1)
  - Erythema multiforme [Not Recovered/Not Resolved]
